FAERS Safety Report 23088601 (Version 2)
Quarter: 2023Q4

REPORT INFORMATION
  Report Type: Report from Study
  Country: MX (occurrence: MX)
  Receive Date: 20231020
  Receipt Date: 20231120
  Transmission Date: 20240110
  Serious: Yes (Other)
  Sender: FDA-Public Use
  Company Number: MX-002147023-NVSC2023MX223510

PATIENT
  Sex: Female
  Weight: 75 kg

DRUGS (2)
  1. KISQALI [Suspect]
     Active Substance: RIBOCICLIB
     Indication: Breast cancer
     Dosage: UNK
     Route: 048
     Dates: start: 20230424
  2. KISQALI [Suspect]
     Active Substance: RIBOCICLIB
     Dosage: UNK
     Route: 048

REACTIONS (16)
  - Inflammatory bowel disease [Unknown]
  - Body mass index abnormal [Unknown]
  - Weight decreased [Unknown]
  - Abdominal pain lower [Unknown]
  - Dermatitis [Unknown]
  - Photosensitivity reaction [Unknown]
  - Malaise [Unknown]
  - Food craving [Unknown]
  - Feeling abnormal [Unknown]
  - Haemoglobin decreased [Unknown]
  - Platelet count decreased [Unknown]
  - Abdominal pain [Unknown]
  - Dyspnoea [Unknown]
  - Pruritus [Unknown]
  - Constipation [Unknown]
  - Inflammation [Unknown]
